FAERS Safety Report 4758792-8 (Version None)
Quarter: 2005Q3

REPORT INFORMATION
  Report Type: 
  Country: None (occurrence: None)
  Receive Date: 20050901
  Receipt Date: 20050825
  Transmission Date: 20060218
  Serious: Yes (Hospitalization)
  Sender: FDA-Public Use
  Company Number: JP-BRACCO-BRO-009066

PATIENT
  Age: 70 Year
  Sex: Male
  Weight: 80 kg

DRUGS (2)
  1. IOPAMIRON [Suspect]
     Indication: THYROID GLAND CANCER
     Route: 042
     Dates: start: 20050819, end: 20050819
  2. IOPAMIRON [Suspect]
     Route: 042
     Dates: start: 20050819, end: 20050819

REACTIONS (6)
  - DIZZINESS [None]
  - DIZZINESS POSTURAL [None]
  - DYSSTASIA [None]
  - MYOCARDIAL INFARCTION [None]
  - PULSE ABSENT [None]
  - SHOCK [None]
